FAERS Safety Report 7356800-1 (Version None)
Quarter: 2011Q1

REPORT INFORMATION
  Report Type: 
  Country: None (occurrence: None)
  Receive Date: 20110316
  Receipt Date: 20110303
  Transmission Date: 20110831
  Serious: Yes (Death, Other)
  Sender: FDA-Public Use
  Company Number: US-MYLANLABS-2011S1004371

PATIENT
  Age: 80 Year
  Sex: Female

DRUGS (8)
  1. NAPROXEN SODIUM [Interacting]
     Route: 065
  2. ACETAMINOPHEN [Concomitant]
     Route: 065
  3. LISINOPRIL [Concomitant]
     Route: 065
  4. METHOTREXATE [Suspect]
     Route: 065
  5. METOPROLOL [Concomitant]
     Route: 065
  6. DIGOXIN [Concomitant]
     Route: 065
  7. FUROSEMIDE [Concomitant]
     Route: 065
  8. CELECOXIB [Concomitant]
     Indication: ARTHRALGIA
     Route: 065

REACTIONS (2)
  - HAEMORRHAGE [None]
  - DRUG INTERACTION [None]
